APPROVED DRUG PRODUCT: IFEX/MESNEX KIT
Active Ingredient: IFOSFAMIDE; MESNA
Strength: 1GM/VIAL;100MG/ML
Dosage Form/Route: INJECTABLE;INJECTION
Application: N019763 | Product #003
Applicant: BAXTER HEALTHCARE CORP
Approved: Oct 10, 1992 | RLD: No | RS: No | Type: DISCN